FAERS Safety Report 10081116 (Version 1)
Quarter: 2014Q2

REPORT INFORMATION
  Report Type: Spontaneous
  Country: US (occurrence: None)
  Receive Date: 20140415
  Receipt Date: 20140415
  Transmission Date: 20141212
  Serious: Yes (Other)
  Sender: FDA-Public Use
  Company Number: None

PATIENT
  Age: 61 Year
  Sex: Male
  Weight: 172.82 kg

DRUGS (7)
  1. FOSAMAX [Suspect]
     Indication: OSTEOARTHRITIS
     Route: 048
     Dates: start: 20140404
  2. PROTONIX [Concomitant]
  3. LEXAPRO [Concomitant]
  4. TRAZODONE [Concomitant]
  5. HYDROCHLOROTHIAZIDE [Concomitant]
  6. IBUPROFEN [Concomitant]
  7. CAMBOGIA GARCENIA SUPPLEMENTS [Concomitant]

REACTIONS (4)
  - Neck pain [None]
  - Back pain [None]
  - Musculoskeletal pain [None]
  - Arthralgia [None]
